APPROVED DRUG PRODUCT: ABIRATERONE ACETATE
Active Ingredient: ABIRATERONE ACETATE
Strength: 500MG
Dosage Form/Route: TABLET;ORAL
Application: A215086 | Product #001 | TE Code: AB
Applicant: FLORIDA PHARMACEUTICAL PRODUCTS LLC
Approved: Mar 23, 2023 | RLD: No | RS: No | Type: RX